FAERS Safety Report 8329793-8 (Version None)
Quarter: 2012Q2

REPORT INFORMATION
  Report Type: 
  Country: None (occurrence: None)
  Receive Date: 20120502
  Receipt Date: 20091026
  Transmission Date: 20120825
  Serious: No
  Sender: FDA-Public Use
  Company Number: US-TEVA-2009011872

PATIENT
  Sex: Male
  Weight: 63.56 kg

DRUGS (2)
  1. PRANDIN [Concomitant]
     Dates: start: 20070101
  2. NUVIGIL [Suspect]
     Indication: FATIGUE
     Dosage: 150 MILLIGRAM;
     Route: 048
     Dates: start: 20091019

REACTIONS (2)
  - DRUG EFFECT DELAYED [None]
  - SOMNOLENCE [None]
